FAERS Safety Report 14629955 (Version 1)
Quarter: 2018Q1

REPORT INFORMATION
  Report Type: Spontaneous
  Country: US (occurrence: US)
  Receive Date: 20180313
  Receipt Date: 20180313
  Transmission Date: 20180509
  Serious: No
  Sender: FDA-Public Use
  Company Number: US-GLENMARK PHARMACEUTICALS-2017GMK026892

PATIENT

DRUGS (1)
  1. LAMOTRIGINE CHEWABLE DISPERSIBLE TABLETS [Suspect]
     Active Substance: LAMOTRIGINE
     Indication: ABNORMAL BEHAVIOUR
     Dosage: 1 DF, EVERY OTHER DAY
     Route: 048

REACTIONS (1)
  - Drug ineffective for unapproved indication [Unknown]
